FAERS Safety Report 4369696-7 (Version None)
Quarter: 2004Q2

REPORT INFORMATION
  Report Type: 
  Country: None (occurrence: None)
  Receive Date: 20040527
  Receipt Date: 20040521
  Transmission Date: 20050107
  Serious: Yes (Disabling)
  Sender: FDA-Public Use
  Company Number: 2004-04-1295

PATIENT
  Age: 55 Year
  Sex: Male
  Weight: 72 kg

DRUGS (13)
  1. REBETOL [Suspect]
     Indication: HEPATITIS C
     Dosage: SEE IMAGE ORAL
     Route: 048
     Dates: start: 20040203, end: 20040223
  2. REBETOL [Suspect]
     Indication: HEPATITIS C
     Dosage: SEE IMAGE ORAL
     Route: 048
     Dates: start: 20040203, end: 20040417
  3. REBETOL [Suspect]
     Indication: HEPATITIS C
     Dosage: SEE IMAGE ORAL
     Route: 048
     Dates: start: 20040224, end: 20040417
  4. INTRON A [Suspect]
     Indication: CHRONIC HEPATITIS
     Dosage: SEE IMAGE INTRAMUSCULAR
     Route: 030
     Dates: start: 20040203, end: 20040212
  5. INTRON A [Suspect]
     Indication: CHRONIC HEPATITIS
     Dosage: SEE IMAGE INTRAMUSCULAR
     Route: 030
     Dates: start: 20040203, end: 20040417
  6. INTRON A [Suspect]
     Indication: CHRONIC HEPATITIS
     Dosage: SEE IMAGE INTRAMUSCULAR
     Route: 030
     Dates: start: 20040216, end: 20040417
  7. HARNAL (TAMSULOSIN HYDROCHLORIDE) CAPSULES [Concomitant]
  8. BUP-4 TABLETS [Concomitant]
  9. CARMELLOSE SODIUM [Concomitant]
  10. LENDORMIN TABLETS [Concomitant]
  11. IMIDAPRIL HCL TABLETS [Concomitant]
  12. AMARYL [Concomitant]
  13. HERBAL MEDICATION NOS [Concomitant]

REACTIONS (3)
  - RETINAL HAEMORRHAGE [None]
  - RETINAL VEIN OCCLUSION [None]
  - RETINOPATHY [None]
